FAERS Safety Report 19121092 (Version 1)
Quarter: 2021Q2

REPORT INFORMATION
  Report Type: Report from Study
  Country: CA (occurrence: CA)
  Receive Date: 20210412
  Receipt Date: 20210412
  Transmission Date: 20210717
  Serious: Yes (Other)
  Sender: FDA-Public Use
  Company Number: CA-JNJFOC-20181227895

PATIENT
  Age: 67 Year
  Sex: Female
  Weight: 73.48 kg

DRUGS (2)
  1. REMICADE [Suspect]
     Active Substance: INFLIXIMAB
     Indication: CROHN^S DISEASE
     Route: 042
     Dates: start: 20140317
  2. REMICADE [Suspect]
     Active Substance: INFLIXIMAB
     Dosage: 3 MG/KG. ON 06?APR?2021, THE PATIENT RECEIVED 38 DOSE OF 400MG INFLIXIMAB INFUSION.
     Route: 042

REACTIONS (6)
  - Diarrhoea [Recovered/Resolved]
  - Influenza [Recovering/Resolving]
  - Nephrolithiasis [Recovered/Resolved]
  - Haematuria [Unknown]
  - Cystitis [Recovered/Resolved]
  - Abdominal pain [Unknown]

NARRATIVE: CASE EVENT DATE: 2018
